FAERS Safety Report 9806070 (Version 7)
Quarter: 2017Q1

REPORT INFORMATION
  Report Type: Report from Study
  Country: US (occurrence: US)
  Receive Date: 20140109
  Receipt Date: 20170227
  Transmission Date: 20170429
  Serious: Yes (Hospitalization, Other)
  Sender: FDA-Public Use
  Company Number: US-ALEXION PHARMACEUTICALS INC.-A201304756

PATIENT
  Age: 53 Year
  Sex: Female
  Weight: 75.47 kg

DRUGS (10)
  1. EMLA [Concomitant]
     Active Substance: LIDOCAINE\PRILOCAINE
     Indication: PRODUCT USED FOR UNKNOWN INDICATION
     Dosage: 2.5/2.5 PERCENT
     Route: 061
  2. ASPIRIN                            /00002701/ [Concomitant]
     Active Substance: ASPIRIN
     Indication: PRODUCT USED FOR UNKNOWN INDICATION
     Dosage: 81 MG, UNK
     Route: 048
  3. SERTRALINE [Concomitant]
     Active Substance: SERTRALINE HYDROCHLORIDE
     Indication: PRODUCT USED FOR UNKNOWN INDICATION
     Dosage: 50 MG, UNK
     Route: 048
  4. VITAMIN C [Concomitant]
     Active Substance: ASCORBIC ACID
     Indication: PRODUCT USED FOR UNKNOWN INDICATION
     Dosage: 1000 MG, UNK
     Route: 048
  5. ZOFRAN [Concomitant]
     Active Substance: ONDANSETRON HYDROCHLORIDE
     Indication: PRODUCT USED FOR UNKNOWN INDICATION
     Dosage: 8 MG, UNK
     Route: 048
  6. PROMETHAZINE [Concomitant]
     Active Substance: PROMETHAZINE\PROMETHAZINE HYDROCHLORIDE
     Indication: PRODUCT USED FOR UNKNOWN INDICATION
     Dosage: 25 MG, UNK
     Route: 048
  7. SOLIRIS [Suspect]
     Active Substance: ECULIZUMAB
     Indication: PAROXYSMAL NOCTURNAL HAEMOGLOBINURIA
     Dosage: UNK, QW
     Route: 042
     Dates: start: 201302
  8. SOLIRIS [Suspect]
     Active Substance: ECULIZUMAB
     Dosage: 900 MG, Q2W
  9. FOLIC ACID. [Concomitant]
     Active Substance: FOLIC ACID
     Indication: PRODUCT USED FOR UNKNOWN INDICATION
     Dosage: 1 MG, UNK
     Route: 048
  10. MULTIVITAMINS [Concomitant]
     Active Substance: VITAMINS
     Indication: PRODUCT USED FOR UNKNOWN INDICATION
     Route: 048

REACTIONS (18)
  - Infection [Unknown]
  - White blood cell count decreased [Unknown]
  - Breast cancer [Unknown]
  - Menstruation irregular [Unknown]
  - Depression [Unknown]
  - Cervix carcinoma [Unknown]
  - Neutropenia [Unknown]
  - Thrombocytopenia [Unknown]
  - Platelet count decreased [Unknown]
  - Dehydration [Unknown]
  - Metastases to liver [Unknown]
  - K-ras gene mutation [Unknown]
  - Vitamin D deficiency [Unknown]
  - Fatigue [Unknown]
  - Colon cancer metastatic [Unknown]
  - Red blood cell count decreased [Unknown]
  - N-ras gene mutation [Unknown]
  - Blood disorder [Unknown]

NARRATIVE: CASE EVENT DATE: 201411
